FAERS Safety Report 5540887-2 (Version None)
Quarter: 2007Q4

REPORT INFORMATION
  Report Type: 
  Country: None (occurrence: None)
  Receive Date: 20071129
  Receipt Date: 20070702
  Transmission Date: 20080405
  Serious: Yes (Hospitalization)
  Sender: FDA-Public Use
  Company Number: US200707000581

PATIENT
  Age: 57 Year
  Sex: Male
  Weight: 78 kg

DRUGS (6)
  1. ZYPREXA [Suspect]
     Dosage: 5 MG, EACH EVENING; 25 MG, EACH EVENING
     Dates: end: 20070227
  2. ZYPREXA [Suspect]
     Dosage: 5 MG, EACH EVENING; 25 MG, EACH EVENING
     Dates: start: 20060906
  3. RISPERDAL [Concomitant]
  4. DEPAKOTE [Concomitant]
  5. BENADRYL (DIPHENHYDRAMINE HYDROCHLORIDE, PARACETAMOL, PSEUDOEPHEDRINE [Concomitant]
  6. HALDOL (HALOPERIDOL DECANOATE) [Concomitant]

REACTIONS (3)
  - BLOOD GLUCOSE INCREASED [None]
  - OVERDOSE [None]
  - SEDATION [None]
